FAERS Safety Report 15935256 (Version 4)
Quarter: 2019Q2

REPORT INFORMATION
  Report Type: Spontaneous
  Country: US (occurrence: US)
  Receive Date: 20190207
  Receipt Date: 20190415
  Transmission Date: 20190711
  Serious: Yes (Other)
  Sender: FDA-Public Use
  Company Number: US-BIOGEN-2019BI00693269

PATIENT
  Sex: Female

DRUGS (2)
  1. AVONEX [Suspect]
     Active Substance: INTERFERON BETA-1A
     Route: 050
     Dates: start: 20020316
  2. AVONEX [Suspect]
     Active Substance: INTERFERON BETA-1A
     Indication: MULTIPLE SCLEROSIS
     Dosage: TAKES AVONEX WEEKLY AND HAS BEEN ON AVONEX FOR ABOUT 20 YEARS
     Route: 050

REACTIONS (5)
  - Headache [Recovered/Resolved]
  - Colitis [Unknown]
  - Influenza [Recovered/Resolved]
  - Atrial fibrillation [Unknown]
  - Gingivitis [Not Recovered/Not Resolved]
